FAERS Safety Report 25430868 (Version 1)
Quarter: 2025Q2

REPORT INFORMATION
  Report Type: Spontaneous
  Country: HR (occurrence: HR)
  Receive Date: 20250612
  Receipt Date: 20250612
  Transmission Date: 20250717
  Serious: Yes (Other)
  Sender: ASTELLAS
  Company Number: HR-ASTELLAS-2025-AER-030792

PATIENT
  Age: 79 Year
  Sex: Male

DRUGS (11)
  1. XTANDI [Suspect]
     Active Substance: ENZALUTAMIDE
     Indication: Hormone-refractory prostate cancer
     Route: 065
     Dates: start: 20240124
  2. NITROGLYCERIN [Concomitant]
     Active Substance: NITROGLYCERIN
     Indication: Product used for unknown indication
     Route: 065
  3. BISOPROLOL FUMARATE [Concomitant]
     Active Substance: BISOPROLOL FUMARATE
     Indication: Product used for unknown indication
     Dosage: CONCOR 5 MG 1.0.0
     Route: 065
  4. NORVASC [Concomitant]
     Active Substance: AMLODIPINE BESYLATE
     Indication: Product used for unknown indication
     Dosage: NORVASC 10 MG 1.0.0
     Route: 065
  5. CORPROTECT [ACETYLSALICYLIC ACID] [Concomitant]
     Indication: Product used for unknown indication
     Dosage: CORPROTECT 1 CAPS 1.0.0
     Route: 065
  6. ATORVASTATIN [Concomitant]
     Active Substance: ATORVASTATIN
     Indication: Product used for unknown indication
     Dosage: SORTIS 80 MG 0.0.1
     Route: 065
  7. FUROSEMIDE [Concomitant]
     Active Substance: FUROSEMIDE
     Indication: Product used for unknown indication
     Route: 065
  8. DIURON [Concomitant]
     Active Substance: DIURON
     Indication: Product used for unknown indication
     Dosage: DIURON 25 MG 1.0.0
     Route: 065
  9. GLUFORMINA [Concomitant]
     Indication: Product used for unknown indication
     Dosage: GLUFORMIN 850 MG 1.0.1
     Route: 065
  10. MOXONIDINE [Concomitant]
     Active Substance: MOXONIDINE
     Indication: Product used for unknown indication
     Dosage: PHYSIOTENS 0.4 MG 0.0.1
     Route: 065
  11. AMLODIPINE BESYLATE\INDAPAMIDE\PERINDOPRIL ARGININE [Concomitant]
     Active Substance: AMLODIPINE BESYLATE\INDAPAMIDE\PERINDOPRIL ARGININE
     Indication: Product used for unknown indication
     Dosage: TRIPLIXAM 1072.5/10 MG 1.0.0
     Route: 065

REACTIONS (3)
  - Subdural haematoma [Recovered/Resolved]
  - Fall [Recovered/Resolved]
  - Contusion [Recovered/Resolved]

NARRATIVE: CASE EVENT DATE: 20250206
